FAERS Safety Report 10470369 (Version 3)
Quarter: 2015Q3

REPORT INFORMATION
  Report Type: Spontaneous
  Country: US (occurrence: US)
  Receive Date: 20140923
  Receipt Date: 20150707
  Transmission Date: 20151125
  Serious: Yes (Hospitalization, Other)
  Sender: FDA-Public Use
  Company Number: US-BAYER-2014-140860

PATIENT
  Age: 21 Year
  Sex: Female
  Weight: 78 kg

DRUGS (1)
  1. MIRENA [Suspect]
     Active Substance: LEVONORGESTREL
     Indication: CONTRACEPTION
     Dosage: 20 MCG/24HR, CONT
     Route: 015
     Dates: start: 20120327, end: 20121009

REACTIONS (20)
  - Uterine perforation [None]
  - Vomiting [None]
  - Activities of daily living impaired [None]
  - Genital haemorrhage [None]
  - Emotional distress [Not Recovered/Not Resolved]
  - Depression [Not Recovered/Not Resolved]
  - Pelvic inflammatory disease [None]
  - Pelvic pain [None]
  - Injury [None]
  - Internal injury [None]
  - Medical device discomfort [None]
  - Weight increased [None]
  - Abdominal pain [None]
  - General physical health deterioration [None]
  - Mobility decreased [None]
  - Fear [Not Recovered/Not Resolved]
  - Depressed mood [Not Recovered/Not Resolved]
  - Malaise [None]
  - Anxiety [Not Recovered/Not Resolved]
  - Procedural pain [Not Recovered/Not Resolved]

NARRATIVE: CASE EVENT DATE: 2012
